FAERS Safety Report 19039695 (Version 1)
Quarter: 2021Q1

REPORT INFORMATION
  Report Type: Spontaneous
  Country: US (occurrence: US)
  Receive Date: 20210322
  Receipt Date: 20210322
  Transmission Date: 20210420
  Serious: No
  Sender: FDA-Public Use
  Company Number: US-TEVA-2021-US-1890288

PATIENT
  Age: 60 Year
  Sex: Female

DRUGS (1)
  1. TEVA PREDNISONE [Suspect]
     Active Substance: PREDNISONE
     Indication: RASH
     Dosage: 10 MILLIGRAM DAILY;
     Route: 065
     Dates: start: 20210304, end: 20210307

REACTIONS (2)
  - Rash [Recovering/Resolving]
  - Drug ineffective [Unknown]
